FAERS Safety Report 21697899 (Version 3)
Quarter: 2023Q1

REPORT INFORMATION
  Report Type: Report from Study
  Country: CA (occurrence: CA)
  Receive Date: 20221208
  Receipt Date: 20230329
  Transmission Date: 20230418
  Serious: Yes (Other)
  Sender: FDA-Public Use
  Company Number: CA-JNJFOC-20221051204

PATIENT
  Age: 17 Year
  Sex: Female

DRUGS (1)
  1. REMICADE [Suspect]
     Active Substance: INFLIXIMAB
     Indication: Crohn^s disease
     Route: 041
     Dates: start: 20170127

REACTIONS (8)
  - Colitis microscopic [Unknown]
  - Wisdom teeth removal [Recovering/Resolving]
  - Paronychia [Not Recovered/Not Resolved]
  - Pain in jaw [Unknown]
  - Trismus [Unknown]
  - Hyperaesthesia [Unknown]
  - Abdominal pain lower [Not Recovered/Not Resolved]
  - Therapeutic response shortened [Unknown]

NARRATIVE: CASE EVENT DATE: 20220924
